APPROVED DRUG PRODUCT: DEXTROSE 38.5% IN PLASTIC CONTAINER
Active Ingredient: DEXTROSE
Strength: 38.5GM/100ML
Dosage Form/Route: INJECTABLE;INJECTION
Application: N018923 | Product #001
Applicant: ABBOTT LABORATORIES PHARMACEUTICAL PRODUCTS DIV
Approved: Sep 19, 1984 | RLD: No | RS: No | Type: DISCN